FAERS Safety Report 9556531 (Version 1)
Quarter: 2013Q3

REPORT INFORMATION
  Report Type: Spontaneous
  Country: US (occurrence: None)
  Receive Date: 20130906
  Receipt Date: 20130906
  Transmission Date: 20140515
  Serious: Yes (Hospitalization)
  Sender: FDA-Public Use
  Company Number: 163-POMAL-13060243

PATIENT
  Age: 66 Year
  Sex: Female

DRUGS (1)
  1. POMALYST [Suspect]
     Indication: PLASMA CELL MYELOMA
     Dosage: CAPSULE, 4 MG, 21 IN 21 D, PO
     Dates: start: 20130516

REACTIONS (1)
  - Pneumonia [None]
